FAERS Safety Report 14481092 (Version 1)
Quarter: 2018Q1

REPORT INFORMATION
  Report Type: Spontaneous
  Country: US (occurrence: US)
  Receive Date: 20180201
  Receipt Date: 20180201
  Transmission Date: 20180509
  Serious: Yes (Death, Hospitalization, Other)
  Sender: FDA-Public Use
  Company Number: None

PATIENT

DRUGS (4)
  1. HEPARIN [Concomitant]
     Active Substance: HEPARIN SODIUM
  2. FUROSEMIDE. [Suspect]
     Active Substance: FUROSEMIDE
  3. ISOSORBIDE MONONITRATE. [Suspect]
     Active Substance: ISOSORBIDE MONONITRATE
  4. HYDROCODONE-APAP [Concomitant]
     Active Substance: ACETAMINOPHEN\HYDROCODONE

REACTIONS (8)
  - Unresponsive to stimuli [None]
  - Head injury [None]
  - Joint injury [None]
  - Fall [None]
  - Arthralgia [None]
  - Blood glucose increased [None]
  - Haemorrhage [None]
  - Hypotension [None]
